FAERS Safety Report 6816051-3 (Version None)
Quarter: 2010Q3

REPORT INFORMATION
  Report Type: 
  Country: None (occurrence: None)
  Receive Date: 20100705
  Receipt Date: 20100625
  Transmission Date: 20110219
  Serious: No
  Sender: FDA-Public Use
  Company Number: US-BIOGENIDEC-2010BI022258

PATIENT
  Age: 28 Year
  Sex: Female

DRUGS (6)
  1. TYSABRI [Suspect]
     Indication: MULTIPLE SCLEROSIS
     Route: 042
     Dates: start: 20070425
  2. ZONEGRAN [Concomitant]
     Indication: EPILEPSY
     Dates: start: 19950101
  3. LAMICTAL [Concomitant]
     Indication: EPILEPSY
     Dates: start: 19950101
  4. VIMPAT [Concomitant]
     Indication: EPILEPSY
     Dates: start: 19950101
  5. RANITIDINE [Concomitant]
     Indication: GASTROOESOPHAGEAL REFLUX DISEASE
     Dates: start: 20000101
  6. TRAZODONE HCL [Concomitant]
     Indication: DEPRESSION

REACTIONS (1)
  - PAIN [None]
